FAERS Safety Report 14045853 (Version 2)
Quarter: 2017Q4

REPORT INFORMATION
  Report Type: Spontaneous
  Country: US (occurrence: US)
  Receive Date: 20171005
  Receipt Date: 20171113
  Transmission Date: 20180321
  Serious: Yes (Other)
  Sender: FDA-Public Use
  Company Number: US-BAYER-2017-188047

PATIENT
  Age: 25 Year
  Sex: Female
  Weight: 49.89 kg

DRUGS (1)
  1. MIRENA [Suspect]
     Active Substance: LEVONORGESTREL
     Indication: CONTRACEPTION
     Dosage: 20 MCG/24HR, CONT
     Route: 015
     Dates: start: 20170313, end: 20170419

REACTIONS (3)
  - Embedded device [Recovered/Resolved with Sequelae]
  - Pelvic pain [Recovered/Resolved with Sequelae]
  - Abdominal pain lower [Recovered/Resolved with Sequelae]

NARRATIVE: CASE EVENT DATE: 2017
